FAERS Safety Report 8069820-9 (Version None)
Quarter: 2012Q1

REPORT INFORMATION
  Report Type: 
  Country: None (occurrence: None)
  Receive Date: 20120125
  Receipt Date: 20120125
  Transmission Date: 20120608
  Serious: Yes (Disabling)
  Sender: FDA-Public Use
  Company Number: None

PATIENT
  Age: 47 Year
  Sex: Female
  Weight: 52.616 kg

DRUGS (3)
  1. CRESTOR [Suspect]
     Indication: BLOOD CHOLESTEROL INCREASED
     Dosage: 5 MG
     Route: 002
     Dates: start: 20110401, end: 20120123
  2. LEVOXYL [Concomitant]
     Route: 048
  3. LEVOXYL [Concomitant]
     Route: 048

REACTIONS (1)
  - ARTHRALGIA [None]
